FAERS Safety Report 6596895-6 (Version None)
Quarter: 2010Q1

REPORT INFORMATION
  Report Type: 
  Country: None (occurrence: None)
  Receive Date: 20100212
  Receipt Date: 20100129
  Transmission Date: 20100710
  Serious: Yes (Other)
  Sender: FDA-Public Use
  Company Number: 8054608

PATIENT
  Age: 6 Month
  Sex: Female

DRUGS (1)
  1. KEPPRA [Suspect]
     Dosage: TRANSPLACENTAL
     Route: 064

REACTIONS (2)
  - CONGENITAL FOOT MALFORMATION [None]
  - MATERNAL DRUGS AFFECTING FOETUS [None]
